FAERS Safety Report 6286620-0 (Version None)
Quarter: 2009Q3

REPORT INFORMATION
  Report Type: 
  Country: None (occurrence: None)
  Receive Date: 20090727
  Receipt Date: 20090727
  Transmission Date: 20100115
  Serious: Yes (Other)
  Sender: FDA-Public Use
  Company Number: None

PATIENT
  Age: 37 Year
  Sex: Female
  Weight: 19.5047 kg

DRUGS (1)
  1. ZOLPIDEM TARTRATE [Suspect]
     Indication: INSOMNIA
     Dosage: 1 TABLET AT BEDTIME
     Dates: start: 20090708

REACTIONS (4)
  - HEADACHE [None]
  - INSOMNIA [None]
  - PAIN [None]
  - POOR QUALITY SLEEP [None]
